FAERS Safety Report 8804570 (Version 1)
Quarter: 2012Q4

REPORT INFORMATION
  Report Type: 
  Country: FR (occurrence: FR)
  Receive Date: 20120924
  Receipt Date: 20120924
  Transmission Date: 20130627
  Serious: Yes (Hospitalization)
  Sender: FDA-Public Use
  Company Number: FR-SANOFI-AVENTIS-2012SA067184

PATIENT
  Age: 64 Year
  Sex: Male

DRUGS (5)
  1. RIFADINE [Suspect]
     Indication: PULMONARY TUBERCULOSIS
     Route: 048
     Dates: start: 20120207
  2. PIRILENE [Suspect]
     Indication: PULMONARY TUBERCULOSIS
     Route: 048
     Dates: start: 20120207
  3. RIFATER [Suspect]
     Indication: PULMONARY TUBERCULOSIS
     Route: 065
     Dates: start: 201202, end: 201204
  4. HYDROCHLOROTHIAZIDE/OLMESARTAN MEDOXOMIL [Concomitant]
  5. DEXAMBUTOL [Concomitant]
     Indication: PULMONARY TUBERCULOSIS
     Dates: start: 201202, end: 201203

REACTIONS (2)
  - Arthralgia [Not Recovered/Not Resolved]
  - Hyperuricaemia [Not Recovered/Not Resolved]
